FAERS Safety Report 9238607 (Version 3)
Quarter: 2019Q4

REPORT INFORMATION
  Report Type: Spontaneous
  Country: US (occurrence: US)
  Receive Date: 20130418
  Receipt Date: 20191017
  Transmission Date: 20200122
  Serious: Yes (Other)
  Sender: FDA-Public Use
  Company Number: US-SANOFI-AVENTIS-2013SA038842

PATIENT
  Age: 38 Year
  Sex: Male

DRUGS (2)
  1. AUBAGIO [Suspect]
     Active Substance: TERIFLUNOMIDE
     Indication: MULTIPLE SCLEROSIS
     Dosage: 14 MG,QD
     Route: 048
     Dates: start: 20130320
  2. AUBAGIO [Suspect]
     Active Substance: TERIFLUNOMIDE
     Dosage: 14 MG, QD
     Route: 048
     Dates: start: 20190517

REACTIONS (8)
  - Photopsia [Unknown]
  - Sunburn [Unknown]
  - Rash [Unknown]
  - Visual impairment [Unknown]
  - Blepharospasm [Unknown]
  - Neuropathy peripheral [Unknown]
  - Rectal haemorrhage [Not Recovered/Not Resolved]
  - Weight decreased [Unknown]
